FAERS Safety Report 6185711-2 (Version None)
Quarter: 2009Q2

REPORT INFORMATION
  Report Type: 
  Country: None (occurrence: None)
  Receive Date: 20090507
  Receipt Date: 20090414
  Transmission Date: 20091009
  Serious: Yes (Hospitalization)
  Sender: FDA-Public Use
  Company Number: M-09-0341

PATIENT
  Age: 79 Year
  Sex: Female

DRUGS (5)
  1. FORTICAL [Suspect]
     Indication: OSTEOPOROSIS
     Dosage: 200 IU, QD, INTRANASAL
     Dates: start: 20090401, end: 20090413
  2. CIPROFLAXACIN [Suspect]
     Indication: GASTROINTESTINAL PAIN
     Dosage: 500 MG, BID, PO
     Route: 048
     Dates: start: 20090401, end: 20090412
  3. LISINOPRIL [Concomitant]
  4. NEXIUM [Concomitant]
  5. LUMIGAN [Concomitant]

REACTIONS (10)
  - ABDOMINAL DISCOMFORT [None]
  - BONE PAIN [None]
  - DIARRHOEA [None]
  - DIZZINESS [None]
  - FAECES DISCOLOURED [None]
  - HEADACHE [None]
  - NECK PAIN [None]
  - PAINFUL DEFAECATION [None]
  - RHINORRHOEA [None]
  - VERTIGO POSITIONAL [None]
